FAERS Safety Report 4932411-X (Version None)
Quarter: 2006Q1

REPORT INFORMATION
  Report Type: 
  Country: None (occurrence: None)
  Receive Date: 20060301
  Receipt Date: 20060220
  Transmission Date: 20060701
  Serious: Yes (Death, Other)
  Sender: FDA-Public Use
  Company Number: 2004090802

PATIENT
  Age: 45 Year
  Sex: Male

DRUGS (6)
  1. ZELDOX (CAPSULES) (ZIPRASIDONE) [Suspect]
     Indication: SCHIZOPHRENIA
     Dosage: 160 MG (80 MG, 2 IN 1 D), ORAL
     Route: 048
     Dates: start: 20040830
  2. ALCOHOL (ETHANOL) [Suspect]
     Indication: ILL-DEFINED DISORDER
     Dosage: ORAL
     Route: 048
  3. SOBRIL (OXAZEPAM) [Suspect]
     Indication: ANXIETY
     Dosage: 15 MG, 1 IN 1 D,  ORAL
     Route: 048
  4. ZOPICLONE (ZOPICLONE) [Concomitant]
  5. ZYPREXA [Concomitant]
  6. MAREVAN FORTE (WARFARIN SODIUM) [Concomitant]

REACTIONS (4)
  - ELECTROCARDIOGRAM QT PROLONGED [None]
  - FALL [None]
  - HALLUCINATION [None]
  - HEAD INJURY [None]
